FAERS Safety Report 7650742-X (Version None)
Quarter: 2011Q3

REPORT INFORMATION
  Report Type: 
  Country: None (occurrence: None)
  Receive Date: 20110802
  Receipt Date: 20110728
  Transmission Date: 20111222
  Serious: Yes (Hospitalization)
  Sender: FDA-Public Use
  Company Number: JP-PFIZER INC-2011172778

PATIENT
  Age: 74 Year
  Sex: Female

DRUGS (2)
  1. TEMSIROLIMUS [Suspect]
     Indication: RENAL CELL CARCINOMA
     Dosage: 25 MG, WEEKLY
     Route: 017
     Dates: start: 20101120, end: 20101120
  2. TEMSIROLIMUS [Suspect]
     Dosage: UNK

REACTIONS (1)
  - PULMONARY OEDEMA [None]
